FAERS Safety Report 7970371-8 (Version None)
Quarter: 2011Q4

REPORT INFORMATION
  Report Type: 
  Country: None (occurrence: None)
  Receive Date: 20111122
  Receipt Date: 20110617
  Transmission Date: 20120403
  Serious: No
  Sender: FDA-Public Use
  Company Number: PHHY2011US16215

PATIENT
  Age: 61 Year
  Sex: Female
  Weight: 120 kg

DRUGS (10)
  1. BENZORATATE [Concomitant]
  2. ALLOPURINOL [Concomitant]
  3. TUSSIONEX [Concomitant]
  4. SERTRALINE HYDROCHLORIDE [Concomitant]
  5. ZOCOR [Concomitant]
  6. PREMARIN [Concomitant]
  7. RYNATAN (MEPYRAMINE TANNATE, PHENIRAMINE TANNATE, PHENYLEPHRINE TANNAT [Concomitant]
  8. DIFLUCAN [Concomitant]
  9. GILENYA [Suspect]
     Indication: MULTIPLE SCLEROSIS
     Dosage: 0.5 MG, QD, ORAL
     Route: 048
     Dates: start: 20110218
  10. SYNTHROID [Concomitant]

REACTIONS (3)
  - OVERDOSE [None]
  - MEMORY IMPAIRMENT [None]
  - RASH [None]
